FAERS Safety Report 7051615-6 (Version None)
Quarter: 2010Q4

REPORT INFORMATION
  Report Type: 
  Country: None (occurrence: None)
  Receive Date: 20101019
  Receipt Date: 20101005
  Transmission Date: 20110411
  Serious: Yes (Hospitalization)
  Sender: FDA-Public Use
  Company Number: US-ELI_LILLY_AND_COMPANY-US201010001439

PATIENT
  Sex: Female

DRUGS (6)
  1. FORTEO [Suspect]
     Indication: OSTEOPOROSIS
     Dosage: 20 UG, DAILY (1/D)
  2. EXFORGE [Concomitant]
     Indication: BLOOD PRESSURE
  3. DIURETICS [Concomitant]
  4. BETA BLOCKING AGENTS [Concomitant]
  5. VITAMIN D [Concomitant]
  6. VITAMIN TAB [Concomitant]

REACTIONS (3)
  - OEDEMA PERIPHERAL [None]
  - PAIN IN EXTREMITY [None]
  - THROMBOSIS [None]
